FAERS Safety Report 8418008-8 (Version None)
Quarter: 2012Q2

REPORT INFORMATION
  Report Type: 
  Country: None (occurrence: None)
  Receive Date: 20120531
  Receipt Date: 20120525
  Transmission Date: 20120825
  Serious: Yes (Other)
  Sender: FDA-Public Use
  Company Number: 134764

PATIENT
  Age: 10 Year
  Sex: Male

DRUGS (1)
  1. METHOTREXATE [Suspect]
     Indication: PRODUCT USED FOR UNKNOWN INDICATION
     Dosage: 1ML SUBCUTANEOUSLY ONCE WEEKLY (4 DOSES - SPECIFIC DATES UNKNOWN)
     Route: 058
     Dates: start: 20120501

REACTIONS (3)
  - MEDICATION ERROR [None]
  - EXPIRED DRUG ADMINISTERED [None]
  - INCORRECT DOSE ADMINISTERED [None]
